FAERS Safety Report 8009214-5 (Version None)
Quarter: 2011Q4

REPORT INFORMATION
  Report Type: 
  Country: None (occurrence: None)
  Receive Date: 20111227
  Receipt Date: 20111219
  Transmission Date: 20120403
  Serious: Yes (Hospitalization, Other)
  Sender: FDA-Public Use
  Company Number: US-ASTRAZENECA-2009SE23894

PATIENT
  Age: 65 Year
  Sex: Female
  Weight: 72.6 kg

DRUGS (19)
  1. SEROQUEL [Suspect]
     Route: 048
     Dates: start: 20100401
  2. SEROQUEL [Suspect]
     Route: 048
  3. LISINOPRIL [Suspect]
     Route: 048
  4. FLOVENT [Concomitant]
     Indication: CARDIAC FAILURE CONGESTIVE
  5. CITALOPRAM HYDROBROMIDE [Concomitant]
  6. SEROQUEL [Suspect]
     Route: 048
     Dates: start: 20100401
  7. LAMOTRIGINE [Concomitant]
  8. LEVOTHYROXINE SODIUM [Concomitant]
  9. SEROQUEL [Suspect]
     Indication: SLEEP TERROR
     Route: 048
     Dates: start: 20060101, end: 20100325
  10. SEROQUEL [Suspect]
     Route: 048
  11. PROAIR HFA [Concomitant]
     Indication: CARDIAC FAILURE CONGESTIVE
  12. ATROVENT [Concomitant]
     Indication: CARDIAC FAILURE CONGESTIVE
  13. VENTOLIN [Concomitant]
  14. SEROQUEL [Suspect]
     Indication: BIPOLAR DISORDER
     Route: 048
     Dates: start: 20060101, end: 20100325
  15. SEROQUEL [Suspect]
     Route: 048
     Dates: start: 20060101, end: 20100325
  16. CLONAZEPAM [Concomitant]
     Dosage: 0.5 MG QAM AND 1 MG QHS
  17. METOPROLOL SUCCINATE [Concomitant]
  18. SEROQUEL [Suspect]
     Route: 048
     Dates: start: 20060101, end: 20100325
  19. PROPRANOLOL [Concomitant]

REACTIONS (13)
  - NECK INJURY [None]
  - PNEUMONIA BACTERIAL [None]
  - INSOMNIA [None]
  - DRUG HYPERSENSITIVITY [None]
  - ANKLE FRACTURE [None]
  - FOOT FRACTURE [None]
  - LIMB INJURY [None]
  - SWELLING [None]
  - CARDIAC FAILURE CONGESTIVE [None]
  - LARYNGITIS [None]
  - BUNION [None]
  - JOINT INJURY [None]
  - DRUG DOSE OMISSION [None]
